FAERS Safety Report 5345146-9 (Version None)
Quarter: 2007Q2

REPORT INFORMATION
  Report Type: 
  Country: None (occurrence: None)
  Receive Date: 20070601
  Receipt Date: 20070523
  Transmission Date: 20071010
  Serious: Yes (Hospitalization)
  Sender: FDA-Public Use
  Company Number: 2007BI010506

PATIENT
  Age: 49 Year
  Sex: Female

DRUGS (1)
  1. NATALIZUMAB [Suspect]
     Indication: MULTIPLE SCLEROSIS
     Dosage: 300 MG QW IV
     Route: 042
     Dates: start: 20070228

REACTIONS (6)
  - ARTHRALGIA [None]
  - FALL [None]
  - MOVEMENT DISORDER [None]
  - MUSCLE SPASMS [None]
  - TIBIA FRACTURE [None]
  - UPPER LIMB FRACTURE [None]
